FAERS Safety Report 7890318-2 (Version None)
Quarter: 2011Q4

REPORT INFORMATION
  Report Type: 
  Country: None (occurrence: None)
  Receive Date: 20111103
  Receipt Date: 20110805
  Transmission Date: 20120403
  Serious: No
  Sender: FDA-Public Use
  Company Number: US-AMGEN-USASP2011039957

PATIENT
  Sex: Female

DRUGS (2)
  1. NAPROXEN [Concomitant]
  2. ENBREL [Suspect]
     Indication: ARTHRITIS
     Dosage: 25 MG, 2 TIMES/WK

REACTIONS (1)
  - INJECTION SITE HAEMATOMA [None]
